FAERS Safety Report 13123098 (Version 1)
Quarter: 2017Q1

REPORT INFORMATION
  Report Type: Spontaneous
  Country: US (occurrence: US)
  Receive Date: 20170117
  Receipt Date: 20170117
  Transmission Date: 20170428
  Serious: Yes (Hospitalization, Other)
  Sender: FDA-Public Use
  Company Number: US-B.I. PHARMACEUTICALS,INC./RIDGEFIELD-2017-BI-001696

PATIENT
  Age: 49 Year
  Sex: Female

DRUGS (2)
  1. GILOTRIF [Suspect]
     Active Substance: AFATINIB
     Indication: EGFR GENE MUTATION
  2. GILOTRIF [Suspect]
     Active Substance: AFATINIB
     Indication: LUNG ADENOCARCINOMA METASTATIC
     Route: 065
     Dates: end: 20150911

REACTIONS (7)
  - Seizure [Unknown]
  - Cerebral disorder [Recovered/Resolved]
  - EGFR gene mutation [Unknown]
  - Metastases to central nervous system [Recovered/Resolved]
  - Metastases to meninges [Recovered/Resolved]
  - Mental status changes [Unknown]
  - Chest pain [Unknown]
